FAERS Safety Report 11987515 (Version 1)
Quarter: 2016Q1

REPORT INFORMATION
  Report Type: Spontaneous
  Country: US (occurrence: None)
  Receive Date: 20160201
  Receipt Date: 20160201
  Transmission Date: 20160526
  Serious: No
  Sender: FDA-Public Use
  Company Number: None

PATIENT

DRUGS (2)
  1. DOCUSOL [Suspect]
     Active Substance: DOCUSATE SODIUM
     Dosage: ENEMA RECTAL MINI-ENEMA 5 MINI-ENEMAS
     Route: 054
  2. DOCUSOL PLUS [Suspect]
     Active Substance: BENZOCAINE\DOCUSATE SODIUM
     Dosage: ENEMA RECTAL MINI-ENEMA 5 MINI-ENEMAS
     Route: 054

REACTIONS (1)
  - Product label confusion [None]
